FAERS Safety Report 21615080 (Version 1)
Quarter: 2022Q4

REPORT INFORMATION
  Report Type: Spontaneous
  Country: FI (occurrence: None)
  Receive Date: 20221118
  Receipt Date: 20221118
  Transmission Date: 20230113
  Serious: Yes (Hospitalization)
  Sender: FDA-Public Use
  Company Number: 2022A371525

PATIENT
  Age: 81 Year
  Sex: Male

DRUGS (12)
  1. DAPAGLIFLOZIN [Suspect]
     Active Substance: DAPAGLIFLOZIN
     Indication: Cardiac failure
     Route: 048
     Dates: start: 20211001, end: 20221025
  2. BISOPROLOL [Concomitant]
     Active Substance: BISOPROLOL
     Route: 048
  3. VIMPAT [Concomitant]
     Active Substance: LACOSAMIDE
     Route: 048
  4. ACETAMINOPHEN [Concomitant]
     Active Substance: ACETAMINOPHEN
     Dosage: AS REQUIRED
     Route: 048
  5. ENTRESTO [Concomitant]
     Active Substance: SACUBITRIL\VALSARTAN
     Route: 048
  6. POLYETHYLENE GLYCOL 4000 [Concomitant]
     Active Substance: POLYETHYLENE GLYCOL 4000
     Dosage: AS REQUIRED
     Route: 048
  7. XARELTO [Concomitant]
     Active Substance: RIVAROXABAN
     Route: 048
  8. SCHERIPROCT NEO [Concomitant]
     Dosage: AS REQUIRED
     Route: 054
  9. CARBOMER [Concomitant]
     Active Substance: CARBOMER
     Route: 047
  10. LEVETIRACETAM ORION [Concomitant]
     Route: 048
  11. FUROSEMIDE [Concomitant]
     Active Substance: FUROSEMIDE
     Dosage: 10.0MG AS REQUIRED
     Route: 048
  12. SPIRONOLACTONE [Concomitant]
     Active Substance: SPIRONOLACTONE
     Dosage: AS REQUIRED
     Route: 048

REACTIONS (3)
  - Tremor [Unknown]
  - Hypoaesthesia [Unknown]
  - Seizure [Unknown]

NARRATIVE: CASE EVENT DATE: 20220726
